FAERS Safety Report 19971890 (Version 2)
Quarter: 2021Q4

REPORT INFORMATION
  Report Type: Spontaneous
  Country: US (occurrence: US)
  Receive Date: 20211019
  Receipt Date: 20211124
  Transmission Date: 20220303
  Serious: No
  Sender: FDA-Public Use
  Company Number: US-GLAXOSMITHKLINE-USCH2021071698

PATIENT
  Sex: Female

DRUGS (2)
  1. ADVIL [Suspect]
     Active Substance: IBUPROFEN
     Indication: Pain
     Dosage: UNK
  2. TUMS EX [Suspect]
     Active Substance: CALCIUM CARBONATE
     Indication: Abdominal pain upper
     Dosage: UNK

REACTIONS (5)
  - Therapeutic product effect variable [Unknown]
  - Illness [Unknown]
  - Product use in unapproved indication [Unknown]
  - Drug effective for unapproved indication [Unknown]
  - Product complaint [Unknown]
